FAERS Safety Report 13566231 (Version 1)
Quarter: 2017Q2

REPORT INFORMATION
  Report Type: Spontaneous
  Country: US (occurrence: US)
  Receive Date: 20170519
  Receipt Date: 20170519
  Transmission Date: 20170830
  Serious: Yes (Hospitalization)
  Sender: FDA-Public Use
  Company Number: None

PATIENT

DRUGS (1)
  1. GEMCITABINE [Suspect]
     Active Substance: GEMCITABINE\GEMCITABINE HYDROCHLORIDE
     Indication: BLADDER CANCER
     Dosage: INFUSE 2,210MG IV ON DAY 1 AND DAY 8, FOR 2 WEEKS ON THEN1 WEEK OFF
     Route: 042
     Dates: start: 20170518

REACTIONS (3)
  - Joint effusion [None]
  - Blood pressure abnormal [None]
  - Abasia [None]
